FAERS Safety Report 25989306 (Version 1)
Quarter: 2025Q4

REPORT INFORMATION
  Report Type: Spontaneous
  Country: CN (occurrence: CN)
  Receive Date: 20251103
  Receipt Date: 20251103
  Transmission Date: 20260118
  Serious: Yes (Other)
  Sender: NOVARTIS
  Company Number: CN-002147023-NVSC2025CN165277

PATIENT
  Age: 56 Year
  Sex: Male

DRUGS (1)
  1. TEGRETOL [Suspect]
     Active Substance: CARBAMAZEPINE
     Indication: Facial spasm
     Dosage: 1 DOSAGE FORM, BID
     Route: 048
     Dates: start: 20250911, end: 20251013

REACTIONS (4)
  - Dermatitis exfoliative [Recovering/Resolving]
  - Rash erythematous [Recovering/Resolving]
  - Rash [Recovering/Resolving]
  - Off label use [Unknown]

NARRATIVE: CASE EVENT DATE: 20250911
